FAERS Safety Report 4696623-5 (Version None)
Quarter: 2005Q2

REPORT INFORMATION
  Report Type: 
  Country: None (occurrence: None)
  Receive Date: 20050620
  Receipt Date: 20050422
  Transmission Date: 20051028
  Serious: Yes (Other)
  Sender: FDA-Public Use
  Company Number: 200511043US

PATIENT
  Age: 50 Year
  Sex: Male
  Weight: 78.6 kg

DRUGS (6)
  1. LANTUS [Suspect]
     Indication: DIABETES MELLITUS INSULIN-DEPENDENT
     Dosage: 30 U
     Dates: start: 20041103
  2. LANTUS [Suspect]
     Indication: DIABETES MELLITUS INSULIN-DEPENDENT
     Dosage: 40 U
     Dates: start: 20041220
  3. LANTUS [Suspect]
     Indication: DIABETES MELLITUS INSULIN-DEPENDENT
     Dosage: 32 U QAM
  4. INSULIN HUMAN INJECTION, ISOPHANE (HUMULIN N) [Concomitant]
  5. HUMALOG [Concomitant]
  6. INSULIN HUMAN (HUMULIN R) [Concomitant]

REACTIONS (2)
  - HYPOGLYCAEMIA [None]
  - HYPOGLYCAEMIC SEIZURE [None]
